FAERS Safety Report 16540977 (Version 1)
Quarter: 2019Q3

REPORT INFORMATION
  Report Type: Spontaneous
  Country: US (occurrence: US)
  Receive Date: 20190708
  Receipt Date: 20190708
  Transmission Date: 20191004
  Serious: Yes (Hospitalization, Other)
  Sender: FDA-Public Use
  Company Number: US-CURIUM PHARMACEUTICALS-200600141

PATIENT
  Age: 75 Year
  Sex: Male
  Weight: 83 kg

DRUGS (2)
  1. ULTRA-TECHNEKOW DTE [Suspect]
     Active Substance: TECHNETIUM TC-99M SODIUM PERTECHNETATE
     Indication: CARDIAC STRESS TEST
     Route: 042
     Dates: start: 20051116, end: 20051116
  2. MYOVIEW [Suspect]
     Active Substance: TECHNETIUM TC-99M TETROFOSMIN
     Indication: CARDIAC STRESS TEST
     Dosage: UNKNOWN
     Route: 042
     Dates: start: 20051116, end: 20051116

REACTIONS (1)
  - Pneumonia aspiration [Recovered/Resolved]

NARRATIVE: CASE EVENT DATE: 20051127
